FAERS Safety Report 4790048-X (Version None)
Quarter: 2005Q4

REPORT INFORMATION
  Report Type: 
  Country: None (occurrence: None)
  Receive Date: 20051006
  Receipt Date: 20050929
  Transmission Date: 20060501
  Serious: Yes (Other)
  Sender: FDA-Public Use
  Company Number: FR-JNJFOC-20050901156

PATIENT
  Sex: Female
  Weight: 39 kg

DRUGS (3)
  1. RISPERDAL [Suspect]
     Route: 048
  2. EPITOMAX [Concomitant]
  3. DEPAKENE [Concomitant]
     Route: 065

REACTIONS (1)
  - LEUKOPENIA [None]
